FAERS Safety Report 7978537-8 (Version None)
Quarter: 2011Q4

REPORT INFORMATION
  Report Type: 
  Country: None (occurrence: None)
  Receive Date: 20111214
  Receipt Date: 20111205
  Transmission Date: 20120403
  Serious: Yes (Hospitalization)
  Sender: FDA-Public Use
  Company Number: US-JNJFOC-20111013457

PATIENT
  Sex: Female
  Weight: 103.42 kg

DRUGS (14)
  1. METFORMIN HCL [Concomitant]
     Indication: DIABETES MELLITUS
     Route: 048
  2. AMMONIUM LACTATE [Concomitant]
     Indication: PSORIATIC ARTHROPATHY
     Route: 061
  3. INSULIN [Concomitant]
     Indication: DIABETES MELLITUS
     Dosage: DOSE: 12 UNITS
     Route: 058
  4. OMEPRAZOLE [Concomitant]
     Indication: GASTROOESOPHAGEAL REFLUX DISEASE
     Route: 065
  5. DOVONEX [Concomitant]
     Indication: PSORIATIC ARTHROPATHY
     Route: 061
  6. INSULIN [Concomitant]
     Dosage: DOSE: 15 UNITS
     Route: 058
  7. VICTOZA [Concomitant]
     Indication: DIABETES MELLITUS
     Route: 058
  8. CALTRATE + D [Concomitant]
     Route: 048
  9. ASPIRIN [Concomitant]
     Route: 048
  10. PROBIOTIC [Concomitant]
     Indication: GASTROOESOPHAGEAL REFLUX DISEASE
     Route: 048
  11. CLOBEX [Concomitant]
     Indication: PSORIATIC ARTHROPATHY
     Route: 061
  12. REMICADE [Suspect]
     Indication: PSORIATIC ARTHROPATHY
     Route: 042
     Dates: start: 20111003, end: 20111003
  13. ZOLOFT [Concomitant]
     Indication: DEPRESSION
     Route: 065
  14. PRAVASTATIN [Concomitant]
     Indication: BLOOD CHOLESTEROL
     Route: 048

REACTIONS (15)
  - SWELLING FACE [None]
  - URINARY INCONTINENCE [None]
  - OEDEMA PERIPHERAL [None]
  - PAIN IN EXTREMITY [None]
  - OEDEMA MOUTH [None]
  - FAECAL INCONTINENCE [None]
  - URINE ANALYSIS ABNORMAL [None]
  - GASTROENTERITIS VIRAL [None]
  - HYPERTENSION [None]
  - PYREXIA [None]
  - CONVULSION [None]
  - PRURITUS [None]
  - AMNESIA [None]
  - BLOOD PRESSURE DECREASED [None]
  - URTICARIA [None]
